FAERS Safety Report 10155586 (Version 4)
Quarter: 2014Q2

REPORT INFORMATION
  Report Type: Report from Study
  Country: DE (occurrence: DE)
  Receive Date: 20140506
  Receipt Date: 20140524
  Transmission Date: 20141212
  Serious: Yes (Hospitalization)
  Sender: FDA-Public Use
  Company Number: PHHO2013DE016077

PATIENT
  Sex: 0

DRUGS (7)
  1. EVEROLIMUS [Suspect]
     Indication: RENAL TRANSPLANT
     Dosage: 0.75 MG, BID
     Route: 048
     Dates: start: 20130919, end: 20140107
  2. SANDIMMUN NEORAL [Suspect]
     Indication: RENAL TRANSPLANT
     Dosage: 50-0-40 MG
     Route: 048
     Dates: start: 20130919, end: 20140107
  3. TACROLIMUS [Suspect]
     Indication: RENAL TRANSPLANT
     Dosage: UNK
     Route: 048
     Dates: start: 20140108
  4. PREDNISON [Concomitant]
     Indication: RENAL TRANSPLANT
     Dosage: 5 MG, QD
     Route: 048
     Dates: start: 20130919, end: 20131220
  5. CELLCEPT [Concomitant]
     Indication: RENAL TRANSPLANT
     Dosage: UNK
     Dates: start: 20140108
  6. LERCANIDIPIN [Concomitant]
     Indication: HYPERTENSION
     Dosage: 10 MG, BID
     Route: 048
     Dates: start: 20131024
  7. CALCITROL [Concomitant]
     Indication: HYPERPARATHYROIDISM
     Dosage: 0.25 UG, QD
     Route: 048
     Dates: start: 20131011

REACTIONS (4)
  - Lymphocele [Recovered/Resolved]
  - Gastritis [Recovered/Resolved]
  - Hiatus hernia [Recovered/Resolved]
  - Blood creatinine increased [Recovered/Resolved]
